FAERS Safety Report 8063461-5 (Version None)
Quarter: 2012Q1

REPORT INFORMATION
  Report Type: 
  Country: None (occurrence: None)
  Receive Date: 20120123
  Receipt Date: 20120109
  Transmission Date: 20120608
  Serious: Yes (Hospitalization)
  Sender: FDA-Public Use
  Company Number: IT-CELGENEUS-083-21880-11123585

PATIENT
  Sex: Male
  Weight: 82 kg

DRUGS (4)
  1. CARFILZOMIB [Suspect]
     Indication: MYELOMA RECURRENCE
     Dosage: 40 MILLIGRAM
     Route: 041
     Dates: start: 20111130, end: 20111201
  2. DEXAMETHASONE TAB [Suspect]
     Indication: MYELOMA RECURRENCE
     Dosage: 40 MILLIGRAM
     Route: 048
     Dates: start: 20111130, end: 20111221
  3. REVLIMID [Suspect]
     Indication: MYELOMA RECURRENCE
     Dosage: 25 MILLIGRAM
     Route: 048
     Dates: start: 20111130, end: 20111220
  4. CARFILZOMIB [Suspect]
     Dosage: 54 MILLIGRAM
     Route: 041
     Dates: start: 20111206, end: 20111215

REACTIONS (1)
  - LUNG DISORDER [None]
